FAERS Safety Report 5725389-2 (Version None)
Quarter: 2008Q2

REPORT INFORMATION
  Report Type: 
  Country: None (occurrence: None)
  Receive Date: 20080501
  Receipt Date: 20080423
  Transmission Date: 20081010
  Serious: Yes (Hospitalization, Other)
  Sender: FDA-Public Use
  Company Number: FR-PFIZER INC-2008005596

PATIENT
  Sex: Male
  Weight: 16 kg

DRUGS (9)
  1. VFEND [Suspect]
     Indication: HEPATOSPLENIC CANDIDIASIS
     Route: 042
     Dates: start: 20070830, end: 20071023
  2. VFEND [Suspect]
     Route: 042
     Dates: start: 20071123, end: 20071224
  3. DRUG, UNSPECIFIED [Concomitant]
  4. BACTRIM [Concomitant]
     Route: 048
  5. SOLUPRED [Concomitant]
     Dates: start: 20071117, end: 20071204
  6. PARACETAMOL [Concomitant]
     Route: 048
  7. OMEPRAZOLE [Concomitant]
     Dates: start: 20071109, end: 20071123
  8. ALL OTHER THERAPEUTIC PRODUCTS [Concomitant]
  9. METRONIDAZOLE HCL [Concomitant]

REACTIONS (8)
  - ALANINE AMINOTRANSFERASE INCREASED [None]
  - ANOREXIA [None]
  - ASPARTATE AMINOTRANSFERASE INCREASED [None]
  - DRUG TOXICITY [None]
  - GAMMA-GLUTAMYLTRANSFERASE INCREASED [None]
  - GENERAL PHYSICAL HEALTH DETERIORATION [None]
  - INFLAMMATION [None]
  - PYREXIA [None]
